FAERS Safety Report 17938888 (Version 2)
Quarter: 2021Q2

REPORT INFORMATION
  Report Type: Spontaneous
  Country: CA (occurrence: CA)
  Receive Date: 20200624
  Receipt Date: 20210628
  Transmission Date: 20210717
  Serious: Yes (Other)
  Sender: FDA-Public Use
  Company Number: CA-TEVA-2020-CA-1790951

PATIENT
  Age: 32 Year
  Sex: Female

DRUGS (2)
  1. PREDNISONE. [Concomitant]
     Active Substance: PREDNISONE
     Dosage: 40 MILLIGRAM DAILY;
  2. CLINDAMYCIN HYDROCHLORIDE. [Suspect]
     Active Substance: CLINDAMYCIN HYDROCHLORIDE
     Indication: MASTITIS
     Route: 065

REACTIONS (11)
  - C-reactive protein increased [Unknown]
  - Haemoglobin decreased [Unknown]
  - Nausea [Unknown]
  - Crohn^s disease [Unknown]
  - Clostridium difficile colitis [Unknown]
  - Colitis [Unknown]
  - Frequent bowel movements [Unknown]
  - Drug ineffective [Unknown]
  - Hypokalaemia [Unknown]
  - Rectal haemorrhage [Unknown]
  - Vomiting [Unknown]
